FAERS Safety Report 6199984-3 (Version None)
Quarter: 2009Q2

REPORT INFORMATION
  Report Type: 
  Country: None (occurrence: None)
  Receive Date: 20090520
  Receipt Date: 20090520
  Transmission Date: 20091009
  Serious: Yes (Hospitalization, Other)
  Sender: FDA-Public Use
  Company Number: None

PATIENT
  Age: 29 Year
  Sex: Male
  Weight: 68.0396 kg

DRUGS (1)
  1. PAXIL [Suspect]
     Indication: ANXIETY
     Dosage: 1 PILL ONCE A DAY PO
     Route: 048
     Dates: start: 19980101, end: 20090519

REACTIONS (6)
  - ADVERSE DRUG REACTION [None]
  - ALOPECIA [None]
  - CONTUSION [None]
  - ECZEMA [None]
  - MIGRAINE [None]
  - VOMITING [None]
